FAERS Safety Report 11070503 (Version 1)
Quarter: 2015Q2

REPORT INFORMATION
  Report Type: Report from Study
  Country: US (occurrence: US)
  Receive Date: 20150427
  Receipt Date: 20150427
  Transmission Date: 20150821
  Serious: Yes (Other)
  Sender: FDA-Public Use
  Company Number: US-MYLANLABS-2015M1013953

PATIENT

DRUGS (4)
  1. LIDOCAINE. [Suspect]
     Active Substance: LIDOCAINE
     Indication: BLEPHAROPLASTY
     Route: 050
  2. BUPIVACAINE [Suspect]
     Active Substance: BUPIVACAINE
     Indication: BLEPHAROPLASTY
     Route: 050
  3. EPINEPHRINE. [Suspect]
     Active Substance: EPINEPHRINE
     Indication: BLEPHAROPLASTY
     Route: 050
  4. HYALURONIDASE [Suspect]
     Active Substance: HYALURONIDASE
     Indication: BLEPHAROPLASTY
     Route: 050

REACTIONS (3)
  - Lagophthalmos [Not Recovered/Not Resolved]
  - Muscular weakness [Not Recovered/Not Resolved]
  - Myopathy toxic [Not Recovered/Not Resolved]
